FAERS Safety Report 8531360-8 (Version None)
Quarter: 2012Q3

REPORT INFORMATION
  Report Type: 
  Country: None (occurrence: None)
  Receive Date: 20120723
  Receipt Date: 20120711
  Transmission Date: 20120928
  Serious: No
  Sender: FDA-Public Use
  Company Number: US-ACTELION-A-US2012-68544

PATIENT

DRUGS (1)
  1. TRACLEER [Suspect]
     Indication: OCCUPATIONAL EXPOSURE TO DRUG
     Route: 050

REACTIONS (2)
  - PREGNANCY [None]
  - OCCUPATIONAL EXPOSURE TO DRUG [None]
